FAERS Safety Report 5773462-5 (Version None)
Quarter: 2008Q2

REPORT INFORMATION
  Report Type: 
  Country: None (occurrence: None)
  Receive Date: 20080616
  Receipt Date: 20080514
  Transmission Date: 20081010
  Serious: No
  Sender: FDA-Public Use
  Company Number: US-BAYER-200814059NA

PATIENT

DRUGS (2)
  1. AVELOX [Suspect]
     Indication: DRUG USE FOR UNKNOWN INDICATION
     Dosage: UNIT DOSE: 400 MG
     Route: 048
     Dates: start: 20080201
  2. AVELOX [Suspect]
     Dosage: UNIT DOSE: 400 MG
     Route: 048
     Dates: start: 20080201

REACTIONS (3)
  - HYPERSENSITIVITY [None]
  - LUNG DISORDER [None]
  - URTICARIA [None]
